FAERS Safety Report 5614359-0 (Version None)
Quarter: 2008Q1

REPORT INFORMATION
  Report Type: 
  Country: None (occurrence: None)
  Receive Date: 20080130
  Receipt Date: 20080116
  Transmission Date: 20080703
  Serious: Yes (Death)
  Sender: FDA-Public Use
  Company Number: JPI-P-002912

PATIENT
  Age: 39 Year
  Sex: Male

DRUGS (4)
  1. XYREM [Suspect]
     Indication: DRUG USE FOR UNKNOWN INDICATION
     Dosage: 4.5 GM (2.25 GM, 2 IN 1 D) ORAL ; 2.5 GM (1.25, 2 IN 1 D) ORAL
     Route: 048
     Dates: start: 20071211, end: 20071201
  2. XYREM [Suspect]
     Indication: DRUG USE FOR UNKNOWN INDICATION
     Dosage: 4.5 GM (2.25 GM, 2 IN 1 D) ORAL ; 2.5 GM (1.25, 2 IN 1 D) ORAL
     Route: 048
     Dates: start: 20071201, end: 20071230
  3. DEXAMFETAMINE (DEXAMFETAMINE) [Concomitant]
  4. VENLAFAXINE HCL [Concomitant]

REACTIONS (2)
  - HALLUCINATION [None]
  - HALLUCINATION, AUDITORY [None]
